FAERS Safety Report 23672751 (Version 1)
Quarter: 2024Q1

REPORT INFORMATION
  Report Type: Spontaneous
  Country: US (occurrence: None)
  Receive Date: 20240325
  Receipt Date: 20240325
  Transmission Date: 20240410
  Serious: Yes (Hospitalization, Other)
  Sender: FDA-Public Use
  Company Number: None

PATIENT
  Age: 21 Month
  Sex: Male
  Weight: 8.7 kg

DRUGS (1)
  1. BEYFORTUS [Suspect]
     Active Substance: NIRSEVIMAB-ALIP
     Indication: Immunisation
     Dosage: OTHER FREQUENCY : ONCE;?
     Route: 030
     Dates: start: 20231030

REACTIONS (3)
  - Immune thrombocytopenia [None]
  - Neutropenia [None]
  - Exposure to SARS-CoV-2 [None]

NARRATIVE: CASE EVENT DATE: 20240226
